FAERS Safety Report 8534587-4 (Version None)
Quarter: 2012Q3

REPORT INFORMATION
  Report Type: 
  Country: None (occurrence: None)
  Receive Date: 20120724
  Receipt Date: 20120710
  Transmission Date: 20120928
  Serious: No
  Sender: FDA-Public Use
  Company Number: US-ASTRAZENECA-2012SE47894

PATIENT
  Age: 59 Year
  Sex: Female
  Weight: 45.4 kg

DRUGS (2)
  1. NEXIUM [Suspect]
     Indication: GASTRITIS
     Route: 048
     Dates: start: 20120702, end: 20120704
  2. NEXIUM [Suspect]
     Indication: IRRITABLE BOWEL SYNDROME
     Route: 048
     Dates: start: 20120702, end: 20120704

REACTIONS (5)
  - OFF LABEL USE [None]
  - ASTHENIA [None]
  - FATIGUE [None]
  - DIZZINESS [None]
  - ABDOMINAL DISCOMFORT [None]
